FAERS Safety Report 12060919 (Version 2)
Quarter: 2017Q1

REPORT INFORMATION
  Report Type: Spontaneous
  Country: US (occurrence: US)
  Receive Date: 20160210
  Receipt Date: 20170208
  Transmission Date: 20170428
  Serious: No
  Sender: FDA-Public Use
  Company Number: US-EISAI MEDICAL RESEARCH-EC-2016-014165

PATIENT
  Sex: Female

DRUGS (1)
  1. BANZEL [Suspect]
     Active Substance: RUFINAMIDE
     Indication: SEIZURE
     Dosage: UNKNOWN
     Dates: start: 201511

REACTIONS (1)
  - Blindness unilateral [Not Recovered/Not Resolved]

NARRATIVE: CASE EVENT DATE: 201601
